FAERS Safety Report 8155519-7 (Version None)
Quarter: 2012Q1

REPORT INFORMATION
  Report Type: 
  Country: None (occurrence: None)
  Receive Date: 20120222
  Receipt Date: 20120213
  Transmission Date: 20120608
  Serious: Yes (Hospitalization)
  Sender: FDA-Public Use
  Company Number: US-BAYER-2011-065146

PATIENT
  Age: 37 Year
  Sex: Female
  Weight: 108.39 kg

DRUGS (11)
  1. VITAMIN D [Concomitant]
  2. LASIX [Concomitant]
  3. YAZ [Suspect]
     Indication: CONTRACEPTION
     Dosage: UNK
     Route: 048
     Dates: start: 20071101, end: 20090706
  4. HYDROXYZINE PAMOATE [Concomitant]
     Indication: ANXIETY
     Dosage: 25 MG, UNK
     Dates: start: 20090401
  5. ALLEGRA [Concomitant]
     Indication: MULTIPLE ALLERGIES
     Dosage: UNK
     Dates: start: 20080901, end: 20090401
  6. DOXEPIN HCL [Concomitant]
     Indication: DEPRESSION
     Dosage: UNK
     Dates: start: 20081201, end: 20090401
  7. FUROSEMIDE [Concomitant]
     Indication: POLYURIA
     Dosage: 20 MG, UNK
     Dates: start: 20090401
  8. POTASSIUM CHLORIDE [Concomitant]
     Dosage: 10 MEQ, UNK
     Dates: start: 20090501, end: 20090901
  9. ZANTAC [Concomitant]
  10. SINGULAIR [Concomitant]
     Dosage: UNK
     Dates: start: 20081201, end: 20090501
  11. VISTARIL [Concomitant]

REACTIONS (1)
  - PULMONARY EMBOLISM [None]
